FAERS Safety Report 25461114 (Version 9)
Quarter: 2025Q4

REPORT INFORMATION
  Report Type: Spontaneous
  Country: CA (occurrence: CA)
  Receive Date: 20250620
  Receipt Date: 20251113
  Transmission Date: 20260118
  Serious: Yes (Hospitalization, Other)
  Sender: PFIZER
  Company Number: CA-PFIZER INC-202500109266

PATIENT
  Age: 79 Year
  Sex: Male

DRUGS (5)
  1. RUXIENCE [Suspect]
     Active Substance: RITUXIMAB-PVVR
     Indication: Rheumatoid arthritis
     Dosage: 1000 MG, ON DAY 1 AND DAY 15, THEN EVERY 6 MONTHS
     Route: 042
     Dates: start: 20220613
  2. RUXIENCE [Suspect]
     Active Substance: RITUXIMAB-PVVR
     Dosage: 1000 MG, ON DAY 1 AND DAY 15, THEN EVERY 6 MONTHS
     Route: 042
     Dates: start: 20241009
  3. RUXIENCE [Suspect]
     Active Substance: RITUXIMAB-PVVR
     Dosage: 1000 MG, ON DAY 1 AND DAY 15, THEN EVERY 6 MONTHS
     Route: 042
  4. RUXIENCE [Suspect]
     Active Substance: RITUXIMAB-PVVR
     Dosage: 1000 MG, ON DAY 1 AND DAY 15, THEN EVERY 6 MONTHS
     Route: 042
  5. PLAQUENIL [Concomitant]
     Active Substance: HYDROXYCHLOROQUINE SULFATE
     Dosage: 1 DF

REACTIONS (5)
  - Pulmonary oedema [Recovering/Resolving]
  - Hypotension [Recovering/Resolving]
  - Renal disorder [Unknown]
  - Oesophageal spasm [Recovered/Resolved]
  - Muscle spasms [Not Recovered/Not Resolved]
